FAERS Safety Report 6091932-X (Version None)
Quarter: 2009Q1

REPORT INFORMATION
  Report Type: 
  Country: None (occurrence: None)
  Receive Date: 20090225
  Receipt Date: 20081013
  Transmission Date: 20090719
  Serious: No
  Sender: FDA-Public Use
  Company Number: A0751576A

PATIENT
  Age: 27 Year
  Sex: Female

DRUGS (3)
  1. VALTREX [Suspect]
     Indication: DRUG USE FOR UNKNOWN INDICATION
     Dosage: 500MG TWICE PER DAY
     Route: 048
     Dates: start: 20080815, end: 20080818
  2. METRONIDAZOLE [Concomitant]
     Route: 048
  3. FLUCONAZOLE [Concomitant]
     Route: 048

REACTIONS (4)
  - ACNE [None]
  - BACK PAIN [None]
  - PAIN IN EXTREMITY [None]
  - WEIGHT INCREASED [None]
